FAERS Safety Report 17856986 (Version 1)
Quarter: 2020Q2

REPORT INFORMATION
  Report Type: Spontaneous
  Country: FR (occurrence: FR)
  Receive Date: 20200603
  Receipt Date: 20200603
  Transmission Date: 20200714
  Serious: Yes (Hospitalization)
  Sender: FDA-Public Use
  Company Number: FR-009507513-2006FRA000257

PATIENT
  Age: 69 Year
  Sex: Male

DRUGS (5)
  1. BACTRIM [Suspect]
     Active Substance: SULFAMETHOXAZOLE\TRIMETHOPRIM
     Indication: BACTERIAL INFECTION
     Dosage: 3 DOSAGE FORM, QD
     Route: 048
     Dates: start: 20200505, end: 20200511
  2. DAPTOMYCIN. [Suspect]
     Active Substance: DAPTOMYCIN
     Indication: BACTERIAL INFECTION
     Dosage: 900 MILLIGRAM, QD
     Route: 042
     Dates: start: 20200505, end: 20200511
  3. LEVOFLOXACIN. [Suspect]
     Active Substance: LEVOFLOXACIN
     Indication: BACTERIAL INFECTION
     Dosage: 750 MILLIGRAM, QD
     Route: 048
     Dates: start: 20200417, end: 20200505
  4. CLINDAMYCIN. [Suspect]
     Active Substance: CLINDAMYCIN
     Indication: BACTERIAL INFECTION
     Dosage: 1800 MILLIGRAM, QD
     Route: 048
     Dates: start: 20200416, end: 20200505
  5. VANCOMYCIN [Suspect]
     Active Substance: VANCOMYCIN
     Indication: BACTERIAL INFECTION
     Dosage: 2 GRAM
     Route: 042
     Dates: start: 20200423, end: 20200423

REACTIONS (3)
  - Pyrexia [Recovering/Resolving]
  - Cholestasis [Recovering/Resolving]
  - Pancytopenia [Recovering/Resolving]

NARRATIVE: CASE EVENT DATE: 20200508
